FAERS Safety Report 10561328 (Version 3)
Quarter: 2014Q4

REPORT INFORMATION
  Report Type: Spontaneous
  Country: AU (occurrence: AU)
  Receive Date: 20141103
  Receipt Date: 20141124
  Transmission Date: 20150529
  Serious: Yes (Hospitalization, Other)
  Sender: FDA-Public Use
  Company Number: PHHY2014AU140097

PATIENT
  Age: 66 Year
  Sex: Male

DRUGS (6)
  1. DIAZOXIDE [Concomitant]
     Active Substance: DIAZOXIDE
     Indication: PRODUCT USED FOR UNKNOWN INDICATION
     Route: 065
     Dates: start: 200901, end: 200901
  2. TEMOZOLOMIDE. [Concomitant]
     Active Substance: TEMOZOLOMIDE
     Route: 065
     Dates: start: 201212, end: 201303
  3. TEMOZOLOMIDE. [Concomitant]
     Active Substance: TEMOZOLOMIDE
     Indication: PRODUCT USED FOR UNKNOWN INDICATION
     Route: 065
     Dates: start: 2009, end: 2010
  4. OCTREOTIDE [Suspect]
     Active Substance: OCTREOTIDE
     Indication: INSULINOMA
     Route: 058
     Dates: start: 200901, end: 200901
  5. PREDNISOLONE. [Concomitant]
     Active Substance: PREDNISOLONE
     Indication: PRODUCT USED FOR UNKNOWN INDICATION
     Route: 065
     Dates: start: 200901, end: 200901
  6. CAPECITABINE. [Concomitant]
     Active Substance: CAPECITABINE
     Indication: PRODUCT USED FOR UNKNOWN INDICATION
     Route: 065
     Dates: start: 2009, end: 2010

REACTIONS (4)
  - No therapeutic response [Unknown]
  - Electrocardiogram QT prolonged [Unknown]
  - Metastases to liver [Unknown]
  - Hypoglycaemic seizure [Unknown]

NARRATIVE: CASE EVENT DATE: 201208
